FAERS Safety Report 23292035 (Version 3)
Quarter: 2024Q1

REPORT INFORMATION
  Report Type: Spontaneous
  Country: DE (occurrence: DE)
  Receive Date: 20231213
  Receipt Date: 20240125
  Transmission Date: 20240410
  Serious: No
  Sender: FDA-Public Use
  Company Number: DE-PFIZER INC-PV202300192881

PATIENT
  Age: 54 Year
  Sex: Female
  Weight: 63 kg

DRUGS (1)
  1. MEDROXYPROGESTERONE [Suspect]
     Active Substance: MEDROXYPROGESTERONE
     Indication: Contraception
     Dosage: UNK
     Dates: start: 2010

REACTIONS (3)
  - Incorrect dose administered by device [Unknown]
  - Device occlusion [Unknown]
  - Syringe issue [Unknown]

NARRATIVE: CASE EVENT DATE: 20231122
